FAERS Safety Report 13559614 (Version 3)
Quarter: 2018Q1

REPORT INFORMATION
  Report Type: Spontaneous
  Country: US (occurrence: US)
  Receive Date: 20170518
  Receipt Date: 20180131
  Transmission Date: 20180508
  Serious: No
  Sender: FDA-Public Use
  Company Number: US-CELGENEUS-USA-20170502189

PATIENT
  Age: 21 Year
  Sex: Female

DRUGS (2)
  1. CLOBEX [Concomitant]
     Active Substance: CLOBETASOL PROPIONATE
     Indication: PSORIASIS
     Route: 061
     Dates: start: 201403
  2. OTEZLA [Suspect]
     Active Substance: APREMILAST
     Indication: GUTTATE PSORIASIS
     Dosage: 60 MILLIGRAM
     Route: 048
     Dates: start: 20170115, end: 20170424

REACTIONS (1)
  - Skin atrophy [Recovering/Resolving]

NARRATIVE: CASE EVENT DATE: 20170405
